FAERS Safety Report 7689098-5 (Version None)
Quarter: 2011Q3

REPORT INFORMATION
  Report Type: 
  Country: None (occurrence: None)
  Receive Date: 20110817
  Receipt Date: 20110808
  Transmission Date: 20111222
  Serious: Yes (Hospitalization)
  Sender: FDA-Public Use
  Company Number: US-MERCK-1105USA01696

PATIENT
  Age: 51 Year
  Sex: Female
  Weight: 84 kg

DRUGS (21)
  1. HYDROCODONE BITARTRATE AND ACETAMINOPHEN [Concomitant]
     Route: 065
     Dates: start: 20021231, end: 20030130
  2. LEVOTHYROXINE SODIUM [Concomitant]
     Route: 065
  3. CLARITIN [Concomitant]
     Route: 065
  4. FOSAMAX [Suspect]
     Indication: BONE LOSS
     Route: 048
     Dates: start: 19980107, end: 20010518
  5. FOSAMAX [Suspect]
     Indication: OSTEOPENIA
     Route: 048
     Dates: start: 19980107, end: 20010518
  6. PREMARIN [Concomitant]
     Route: 065
     Dates: start: 19970101
  7. EFFEXOR XR [Concomitant]
     Route: 065
     Dates: start: 19800101
  8. FOSAMAX [Suspect]
     Route: 048
     Dates: start: 20010519, end: 20081001
  9. CALCIUM (UNSPECIFIED) AND VITAMIN D (UNSPECIFIED) [Concomitant]
     Route: 048
     Dates: start: 20050101, end: 20110101
  10. HYDROCODONE BITARTRATE AND ACETAMINOPHEN [Concomitant]
     Route: 065
     Dates: start: 20030424, end: 20030523
  11. SYNTHROID [Concomitant]
     Route: 065
     Dates: start: 19970101
  12. LEVOXYL [Concomitant]
     Route: 065
     Dates: start: 20020716, end: 20040408
  13. SYNTHROID [Concomitant]
     Route: 065
  14. PROTONIX [Concomitant]
     Route: 065
  15. CORRECTOL [Concomitant]
     Route: 065
  16. CITRICAL [Concomitant]
     Route: 048
     Dates: start: 20080101, end: 20110101
  17. MINOCYCLINE HCL [Concomitant]
     Route: 065
     Dates: start: 20020216, end: 20020901
  18. FOSAMAX [Suspect]
     Route: 048
     Dates: start: 20010519, end: 20081001
  19. VICOPROFEN [Concomitant]
     Route: 065
     Dates: start: 20020503, end: 20020601
  20. PENICILLIN VK [Concomitant]
     Route: 065
     Dates: start: 20020503, end: 20020603
  21. ARMOUR THYROID TABLETS [Concomitant]
     Route: 065
     Dates: start: 20020716, end: 20050927

REACTIONS (39)
  - BONE METABOLISM DISORDER [None]
  - VITILIGO [None]
  - URINARY INCONTINENCE [None]
  - PAIN [None]
  - MUSCLE STRAIN [None]
  - FOOT FRACTURE [None]
  - FATIGUE [None]
  - ANAEMIA [None]
  - OSTEOPENIA [None]
  - INCREASED TENDENCY TO BRUISE [None]
  - CHOLELITHIASIS [None]
  - STRESS FRACTURE [None]
  - SCOLIOSIS [None]
  - RASH [None]
  - MUSCLE DISORDER [None]
  - HEADACHE [None]
  - PATHOLOGICAL FRACTURE [None]
  - ROAD TRAFFIC ACCIDENT [None]
  - ANXIETY [None]
  - ARTHRALGIA [None]
  - CARDIOMEGALY [None]
  - VITAMIN D DEFICIENCY [None]
  - TOOTH DISORDER [None]
  - SLEEP APNOEA SYNDROME [None]
  - GASTROOESOPHAGEAL REFLUX DISEASE [None]
  - FEMUR FRACTURE [None]
  - BONE DISORDER [None]
  - CARPAL TUNNEL SYNDROME [None]
  - THROMBOSIS PROPHYLAXIS [None]
  - DYSPHAGIA [None]
  - NEPHROLITHIASIS [None]
  - OSTEOARTHRITIS [None]
  - RIB FRACTURE [None]
  - WEIGHT INCREASED [None]
  - FALL [None]
  - COMPRESSION FRACTURE [None]
  - CONTUSION [None]
  - DEFORMITY [None]
  - SPINAL OSTEOARTHRITIS [None]
